FAERS Safety Report 7361997-3 (Version None)
Quarter: 2011Q1

REPORT INFORMATION
  Report Type: 
  Country: None (occurrence: None)
  Receive Date: 20110318
  Receipt Date: 20110317
  Transmission Date: 20110831
  Serious: Yes (Hospitalization, Other)
  Sender: FDA-Public Use
  Company Number: US-ELI_LILLY_AND_COMPANY-US201102004790

PATIENT
  Sex: Male
  Weight: 82.993 kg

DRUGS (2)
  1. HUMULIN 70/30 [Suspect]
     Indication: DIABETES MELLITUS
     Dosage: 25 U, EACH MORNING
     Route: 058
     Dates: start: 20110206
  2. HUMULIN 70/30 [Suspect]
     Dosage: 16 U, EACH EVENING
     Dates: start: 20110206

REACTIONS (4)
  - BLOOD GLUCOSE FLUCTUATION [None]
  - BLOOD GLUCOSE INCREASED [None]
  - ABDOMINAL ADHESIONS [None]
  - DRUG INEFFECTIVE [None]
